FAERS Safety Report 7488830-3 (Version None)
Quarter: 2011Q2

REPORT INFORMATION
  Report Type: 
  Country: None (occurrence: None)
  Receive Date: 20110518
  Receipt Date: 20110510
  Transmission Date: 20111010
  Serious: Yes (Other)
  Sender: FDA-Public Use
  Company Number: US-PFIZER INC-2011060533

PATIENT
  Sex: Female

DRUGS (4)
  1. CORTISONE ACETATE [Suspect]
     Dosage: 10 MG, 1X/DAY
  2. LIPITOR [Suspect]
     Indication: BLOOD CHOLESTEROL INCREASED
     Dosage: 10 MG, DAILY
     Route: 048
     Dates: start: 20020101, end: 20110201
  3. LOPRESSOR [Concomitant]
     Dosage: 50MG IN AM AND 25 MG AT BED TIME
     Dates: end: 20110201
  4. METOPROLOL TARTRATE AND HYDROCHLOROTHIAZIDE [Concomitant]
     Dosage: UNK
     Dates: start: 19930101

REACTIONS (6)
  - PAIN [None]
  - MUSCLE DISORDER [None]
  - DRUG INEFFECTIVE [None]
  - LIMB DISCOMFORT [None]
  - MUSCULAR WEAKNESS [None]
  - MUSCLE INJURY [None]
